FAERS Safety Report 6317910-0 (Version None)
Quarter: 2009Q3

REPORT INFORMATION
  Report Type: 
  Country: None (occurrence: None)
  Receive Date: 20090821
  Receipt Date: 20090814
  Transmission Date: 20100115
  Serious: Yes (Other)
  Sender: FDA-Public Use
  Company Number: US-JNJFOC-20090805147

PATIENT
  Sex: Female
  Weight: 42 kg

DRUGS (11)
  1. CISAPRIDE [Suspect]
     Route: 048
  2. CISAPRIDE [Suspect]
     Indication: GASTROOESOPHAGEAL REFLUX DISEASE
     Route: 048
  3. CALCIUM CITRATE [Concomitant]
     Indication: OSTEOPOROSIS
     Route: 048
  4. MULTI-VITAMINS [Concomitant]
     Indication: MEDICAL DIET
     Route: 048
  5. BISACODYL [Concomitant]
     Indication: CONSTIPATION
  6. VALIUM [Concomitant]
     Indication: EPILEPSY
     Route: 054
  7. BECONASE AQ [Concomitant]
     Indication: RHINITIS ALLERGIC
  8. PROTONIX [Concomitant]
     Indication: GASTROOESOPHAGEAL REFLUX DISEASE
     Route: 048
  9. MIRALAX [Concomitant]
     Indication: CONSTIPATION
     Route: 048
  10. CYPROHEPTADINE HCL [Concomitant]
     Indication: DECREASED APPETITE
     Route: 048
  11. TRANXENE [Concomitant]
     Indication: EPILEPSY
     Route: 048

REACTIONS (1)
  - ELECTROCARDIOGRAM QT PROLONGED [None]
